FAERS Safety Report 17912308 (Version 28)
Quarter: 2022Q3

REPORT INFORMATION
  Report Type: Spontaneous
  Country: GB (occurrence: GB)
  Receive Date: 20200618
  Receipt Date: 20220905
  Transmission Date: 20221026
  Serious: Yes (Death, Other)
  Sender: FDA-Public Use
  Company Number: GB-009507513-2006GBR000756

PATIENT
  Age: 57 Year
  Sex: Male

DRUGS (77)
  1. PREZISTA [Suspect]
     Active Substance: DARUNAVIR ETHANOLATE
     Indication: Product used for unknown indication
     Dosage: STRENGTH: 600 MG,  QD
     Route: 048
  2. PREZISTA [Suspect]
     Active Substance: DARUNAVIR ETHANOLATE
     Dosage: 600 MILLIGRAM, QD
     Route: 048
  3. PREZISTA [Suspect]
     Active Substance: DARUNAVIR ETHANOLATE
     Dosage: UNK, QD (STRENGTH: 600 MG)
     Route: 048
  4. PREZISTA [Suspect]
     Active Substance: DARUNAVIR ETHANOLATE
     Dosage: 600 MILLIGRAM, QD(600 MILLIGRAM, QD)
     Route: 048
  5. PREZISTA [Suspect]
     Active Substance: DARUNAVIR ETHANOLATE
     Dosage: UNK, BID
     Route: 048
  6. PREZISTA [Suspect]
     Active Substance: DARUNAVIR ETHANOLATE
     Dosage: 600 MILLIGRAM, QD
     Route: 048
  7. PREZISTA [Suspect]
     Active Substance: DARUNAVIR ETHANOLATE
     Dosage: 600 MILLIGRAM, QD (600 MG, 1X/DAY)
     Route: 048
  8. PREZISTA [Suspect]
     Active Substance: DARUNAVIR ETHANOLATE
     Dosage: UNK, 2X/DAY
     Route: 048
  9. PREZISTA [Suspect]
     Active Substance: DARUNAVIR ETHANOLATE
     Dosage: UNK, 1X/DAY
     Route: 048
  10. PREZISTA [Suspect]
     Active Substance: DARUNAVIR ETHANOLATE
     Dosage: UNK, 2X/DAY
     Route: 048
  11. PREZISTA [Suspect]
     Active Substance: DARUNAVIR ETHANOLATE
     Dosage: UNK,BID
     Route: 048
  12. PREZISTA [Suspect]
     Active Substance: DARUNAVIR ETHANOLATE
     Dosage: UNK,BID
     Route: 048
  13. PREZISTA [Suspect]
     Active Substance: DARUNAVIR ETHANOLATE
     Route: 048
  14. PREZISTA [Suspect]
     Active Substance: DARUNAVIR ETHANOLATE
     Dosage: UNK, QD
     Route: 048
  15. PREZISTA [Suspect]
     Active Substance: DARUNAVIR ETHANOLATE
     Dosage: UNK, QD
     Route: 048
  16. RALTEGRAVIR [Suspect]
     Active Substance: RALTEGRAVIR
     Indication: Product used for unknown indication
     Dosage: 400 MILLIGRAM ONCE A DAY, BID
     Route: 048
  17. RALTEGRAVIR [Suspect]
     Active Substance: RALTEGRAVIR
     Dosage: UNK, ONCE A DAY, BID;
     Route: 048
  18. RALTEGRAVIR [Suspect]
     Active Substance: RALTEGRAVIR
     Dosage: 400 MILLIGRAM, QD, (BID)
     Route: 048
  19. RALTEGRAVIR [Suspect]
     Active Substance: RALTEGRAVIR
     Dosage: UNK, QD (STRENGTH: 400 MG)
     Route: 048
  20. RALTEGRAVIR [Suspect]
     Active Substance: RALTEGRAVIR
     Dosage: 1 DF, 2X/DAY (ONCE A DAY, BID)
     Route: 048
  21. RALTEGRAVIR [Suspect]
     Active Substance: RALTEGRAVIR
     Route: 048
  22. RALTEGRAVIR [Suspect]
     Active Substance: RALTEGRAVIR
     Dosage: UNK,400 MILLIGRAM ONCE A DAY, BID
     Route: 048
  23. RALTEGRAVIR [Suspect]
     Active Substance: RALTEGRAVIR
     Dosage: UNK UNK, BID
     Route: 048
  24. TENOFOVIR DISOPROXIL [Suspect]
     Active Substance: TENOFOVIR DISOPROXIL
     Indication: Product used for unknown indication
     Dosage: 245 MILLIGRAM, QD
     Route: 065
  25. TENOFOVIR DISOPROXIL [Suspect]
     Active Substance: TENOFOVIR DISOPROXIL
     Dosage: UNK UNK, QD
     Route: 065
  26. TENOFOVIR DISOPROXIL [Suspect]
     Active Substance: TENOFOVIR DISOPROXIL
     Dosage: UNK UNK, QD
     Route: 065
  27. TENOFOVIR DISOPROXIL [Suspect]
     Active Substance: TENOFOVIR DISOPROXIL
     Dosage: UNK, QD (STRENGTH: 245 MG)
     Route: 065
  28. TENOFOVIR DISOPROXIL [Suspect]
     Active Substance: TENOFOVIR DISOPROXIL
     Dosage: 150 MILLIGRAM, QD
     Route: 065
  29. TENOFOVIR DISOPROXIL [Suspect]
     Active Substance: TENOFOVIR DISOPROXIL
     Dosage: UNK, QD
     Route: 065
  30. TENOFOVIR DISOPROXIL [Suspect]
     Active Substance: TENOFOVIR DISOPROXIL
     Dosage: 245 MILLIGRAM, QD (245 MG, 1X/DAY)
     Route: 065
  31. NORVIR [Suspect]
     Active Substance: RITONAVIR
     Indication: Product used for unknown indication
     Dosage: 100 MILLIGRAM, QD
     Route: 065
  32. NORVIR [Suspect]
     Active Substance: RITONAVIR
     Dosage: 100 MILLIGRAM, BID
     Route: 065
  33. NORVIR [Suspect]
     Active Substance: RITONAVIR
     Dosage: UNK UNK, QD
     Route: 065
  34. NORVIR [Suspect]
     Active Substance: RITONAVIR
     Route: 065
  35. NORVIR [Suspect]
     Active Substance: RITONAVIR
     Dosage: 100 MILLIGRAM, QD (100 MG, 1X/DAY)
     Route: 065
  36. NORVIR [Suspect]
     Active Substance: RITONAVIR
     Dosage: 200 MILLIGRAM, QD
     Route: 065
  37. NORVIR [Suspect]
     Active Substance: RITONAVIR
     Dosage: UNK, QD (STRENGTH: 100 MG)
     Route: 065
  38. NORVIR [Suspect]
     Active Substance: RITONAVIR
     Dosage: 200 MILLIGRAM, QD (100 MILLIGRAM, BID (200 MILLIGRAM, ONCE A DAY)
     Route: 065
  39. NORVIR [Suspect]
     Active Substance: RITONAVIR
     Dosage: 100 MILLIGRAM, BID(100 MG, 2X/DAY)
     Route: 065
  40. NORVIR [Suspect]
     Active Substance: RITONAVIR
     Dosage: 200 MILLIGRAM, QD (200 MG, QD ONCE A DAY(100 MILLIGRAM, BID)
     Route: 065
  41. NORVIR [Suspect]
     Active Substance: RITONAVIR
     Dosage: 1X/DAY
     Route: 065
  42. LAMIVUDINE [Suspect]
     Active Substance: LAMIVUDINE
     Indication: Product used for unknown indication
     Dosage: 300 MILLIGRAM, QD (150 MILLIGRAM, BID)
     Route: 065
  43. LAMIVUDINE [Suspect]
     Active Substance: LAMIVUDINE
     Dosage: UNK UNK, BID
     Route: 065
  44. LAMIVUDINE [Suspect]
     Active Substance: LAMIVUDINE
     Dosage: UNK UNK, QD
     Route: 065
  45. LAMIVUDINE [Suspect]
     Active Substance: LAMIVUDINE
     Route: 065
  46. LAMIVUDINE [Suspect]
     Active Substance: LAMIVUDINE
     Route: 065
  47. LAMIVUDINE [Suspect]
     Active Substance: LAMIVUDINE
     Dosage: BID ( 2X/DAY)
     Route: 065
  48. LAMIVUDINE [Suspect]
     Active Substance: LAMIVUDINE
     Dosage: 150 MILLIGRAM, QD
     Route: 065
  49. LAMIVUDINE [Suspect]
     Active Substance: LAMIVUDINE
     Dosage: 300 MILLIGRAM, QD (150 MILLIGRAM, BID)
     Route: 065
  50. LAMIVUDINE [Suspect]
     Active Substance: LAMIVUDINE
     Dosage: UNK, QD (STRENGTH: 150 MG)
     Route: 065
  51. LAMIVUDINE [Suspect]
     Active Substance: LAMIVUDINE
     Dosage: 300 MILLIGRAM (UNK UNK, BID)
     Route: 065
  52. LAMIVUDINE [Suspect]
     Active Substance: LAMIVUDINE
     Dosage: QD (1X/DAY)
     Route: 065
  53. LAMIVUDINE [Suspect]
     Active Substance: LAMIVUDINE
     Dosage: 150 MILLIGRAM, QD
     Route: 065
  54. ACYCLOVIR [Suspect]
     Active Substance: ACYCLOVIR
     Indication: Product used for unknown indication
     Dosage: 400 MILLIGRAM, QD (400 MG, 1X/DAY)
     Route: 065
  55. ACYCLOVIR [Suspect]
     Active Substance: ACYCLOVIR
     Dosage: BID (UNK, 2X/DAY)
     Route: 065
  56. ACYCLOVIR [Suspect]
     Active Substance: ACYCLOVIR
     Dosage: UNK, QD (1X/DAY)
     Route: 065
  57. ACYCLOVIR [Suspect]
     Active Substance: ACYCLOVIR
     Dosage: UNK UNK, BID
     Route: 065
  58. ACYCLOVIR [Suspect]
     Active Substance: ACYCLOVIR
     Dosage: UNK, QD (STRENGTH: 400 MG)
     Route: 065
  59. ACYCLOVIR [Suspect]
     Active Substance: ACYCLOVIR
     Dosage: 400 MILLIGRAM, QD
     Route: 065
  60. ACYCLOVIR [Suspect]
     Active Substance: ACYCLOVIR
     Dosage: 400 MILLIGRAM, QD
     Route: 065
  61. ACYCLOVIR [Suspect]
     Active Substance: ACYCLOVIR
     Route: 065
  62. ACYCLOVIR [Suspect]
     Active Substance: ACYCLOVIR
     Dosage: 400 MILLIGRAM, QD
     Route: 065
  63. ACYCLOVIR [Suspect]
     Active Substance: ACYCLOVIR
     Route: 065
  64. ACYCLOVIR [Suspect]
     Active Substance: ACYCLOVIR
     Dosage: UNK UNK, BID
     Route: 065
  65. ISENTRESS [Suspect]
     Active Substance: RALTEGRAVIR POTASSIUM
     Indication: Product used for unknown indication
     Dosage: UNK UNK, BID
     Route: 048
  66. ISENTRESS [Suspect]
     Active Substance: RALTEGRAVIR POTASSIUM
     Dosage: 400 MILLIGRAM, QD
     Route: 048
  67. ISENTRESS [Suspect]
     Active Substance: RALTEGRAVIR POTASSIUM
     Dosage: UNK UNK, BID
     Route: 065
  68. ISENTRESS [Suspect]
     Active Substance: RALTEGRAVIR POTASSIUM
     Dosage: 1 DOSAGE FORM, BID (1 DF, 2X/DAY (ONCE A DAY, BID) )
     Route: 065
  69. ISENTRESS [Suspect]
     Active Substance: RALTEGRAVIR POTASSIUM
     Dosage: 2 DOSAGE FORM, QD
     Route: 065
  70. ISENTRESS [Suspect]
     Active Substance: RALTEGRAVIR POTASSIUM
     Dosage: 400 MILLIGRAM, QD (400 MG, 1X/DAY)
     Route: 048
  71. ISENTRESS [Suspect]
     Active Substance: RALTEGRAVIR POTASSIUM
     Dosage: 2X/DAY
     Route: 048
  72. LAMIVUDINE [Suspect]
     Active Substance: LAMIVUDINE
     Indication: Product used for unknown indication
     Dosage: 150 MILLIGRAM, BID
     Route: 065
  73. RALTEGRAVIR POTASSIUM [Suspect]
     Active Substance: RALTEGRAVIR POTASSIUM
     Indication: Product used for unknown indication
     Dosage: 400 MILLIGRAM, QD (400 MILLIGRAM ONCE A DAY, BID)
     Route: 048
  74. VIREAD [Suspect]
     Active Substance: TENOFOVIR DISOPROXIL FUMARATE
     Indication: Product used for unknown indication
     Dosage: 245 MILLIGRAM, QD (245 MG, QD)
     Route: 065
  75. RAMIPRIL [Suspect]
     Active Substance: RAMIPRIL
     Indication: Product used for unknown indication
     Dosage: UNK
     Route: 065
  76. RAMIPRIL [Suspect]
     Active Substance: RAMIPRIL
     Dosage: UNK
     Route: 065
  77. RAMIPRIL [Concomitant]
     Active Substance: RAMIPRIL
     Indication: Product used for unknown indication
     Dosage: UNK
     Route: 065

REACTIONS (3)
  - Death [Fatal]
  - Brain stem stroke [Fatal]
  - Fall [Fatal]

NARRATIVE: CASE EVENT DATE: 20200401
